FAERS Safety Report 23449510 (Version 2)
Quarter: 2024Q1

REPORT INFORMATION
  Report Type: Report from Study
  Country: MX (occurrence: MX)
  Receive Date: 20240129
  Receipt Date: 20240226
  Transmission Date: 20240410
  Serious: Yes (Other)
  Sender: FDA-Public Use
  Company Number: MX-JNJFOC-20240129638

PATIENT
  Age: 75 Year
  Sex: Female

DRUGS (3)
  1. PALIPERIDONE PALMITATE [Suspect]
     Active Substance: PALIPERIDONE PALMITATE
     Indication: Schizophrenia
     Route: 030
  2. PALIPERIDONE PALMITATE [Suspect]
     Active Substance: PALIPERIDONE PALMITATE
     Route: 030
  3. PALIPERIDONE PALMITATE [Suspect]
     Active Substance: PALIPERIDONE PALMITATE
     Route: 030
     Dates: start: 20231215, end: 20240113

REACTIONS (4)
  - Delirium [Not Recovered/Not Resolved]
  - Living in residential institution [Unknown]
  - Drug ineffective [Unknown]
  - Poor personal hygiene [Not Recovered/Not Resolved]

NARRATIVE: CASE EVENT DATE: 20240101
